FAERS Safety Report 10233335 (Version 1)
Quarter: 2014Q2

REPORT INFORMATION
  Report Type: Spontaneous
  Country: US (occurrence: US)
  Receive Date: 20140612
  Receipt Date: 20140612
  Transmission Date: 20141212
  Serious: Yes (Other)
  Sender: FDA-Public Use
  Company Number: US-ASTRAZENECA-2014SE40658

PATIENT
  Age: 43 Year
  Sex: Female
  Weight: 86.2 kg

DRUGS (2)
  1. NEXIUM 24HR [Suspect]
     Indication: GASTROOESOPHAGEAL REFLUX DISEASE
     Dosage: 40 MILLIGRAMS (TWO CAPSULES OF ESOMEPRAZOLE 20 MILLIGRAMS IN THE MORNING), ONCE A DAY IN THE MORNING
     Route: 048
     Dates: start: 20140528
  2. BENAZEPRIL/HYDROCHLOROTHIAZIDE [Concomitant]
     Indication: HYPERTENSION

REACTIONS (4)
  - Choking [Unknown]
  - Gastrooesophageal reflux disease [Unknown]
  - Intentional product misuse [Unknown]
  - Drug ineffective [Unknown]
